FAERS Safety Report 24850511 (Version 1)
Quarter: 2025Q1

REPORT INFORMATION
  Report Type: Spontaneous
  Country: IT (occurrence: IT)
  Receive Date: 20250116
  Receipt Date: 20250116
  Transmission Date: 20250409
  Serious: Yes (Life-Threatening)
  Sender: INTERCHEM
  Company Number: IT-HQ SPECIALTY-IT-2025INT000005

PATIENT
  Age: 8 Day
  Sex: Male

DRUGS (4)
  1. DEXMEDETOMIDINE HYDROCHLORIDE [Suspect]
     Active Substance: DEXMEDETOMIDINE HYDROCHLORIDE
     Indication: Sedation
     Route: 042
     Dates: start: 20241208, end: 20241209
  2. CAFFEINA CITRATO MONICO [Concomitant]
     Indication: Apnoea
     Dosage: 10 MG/KG, 24 HR
     Route: 065
  3. FENTANYL [Concomitant]
     Active Substance: FENTANYL
     Indication: Sedation
     Route: 065
     Dates: start: 20241201
  4. NITRIC OXIDE [Concomitant]
     Active Substance: NITRIC OXIDE
     Indication: Newborn persistent pulmonary hypertension
     Route: 065
     Dates: start: 20241201

REACTIONS (3)
  - Neonatal hypotension [Recovering/Resolving]
  - Neonatal anuria [Recovering/Resolving]
  - Product use issue [Unknown]

NARRATIVE: CASE EVENT DATE: 20241208
